FAERS Safety Report 17492037 (Version 1)
Quarter: 2020Q1

REPORT INFORMATION
  Report Type: Spontaneous
  Country: US (occurrence: US)
  Receive Date: 20200303
  Receipt Date: 20200303
  Transmission Date: 20200409
  Serious: No
  Sender: FDA-Public Use
  Company Number: US-NOVOPROD-687243

PATIENT
  Age: 52 Year
  Sex: Female

DRUGS (4)
  1. VICTOZA [Suspect]
     Active Substance: LIRAGLUTIDE
     Dosage: 1.8 MG
     Route: 058
     Dates: start: 2019
  2. VICTOZA [Suspect]
     Active Substance: LIRAGLUTIDE
     Dosage: 1.8 MG
     Route: 058
     Dates: start: 2019, end: 2019
  3. VICTOZA [Suspect]
     Active Substance: LIRAGLUTIDE
     Dosage: 0.6 MG
     Route: 058
     Dates: start: 2019, end: 2019
  4. VICTOZA [Suspect]
     Active Substance: LIRAGLUTIDE
     Indication: DIABETIC COMPLICATION
     Dosage: 0.6 MG
     Route: 058
     Dates: start: 20190128, end: 2019

REACTIONS (3)
  - Intentional product use issue [Recovered/Resolved]
  - Metabolic disorder [Recovered/Resolved]
  - Weight increased [Recovered/Resolved]

NARRATIVE: CASE EVENT DATE: 2019
